FAERS Safety Report 11695925 (Version 1)
Quarter: 2015Q4

REPORT INFORMATION
  Report Type: Spontaneous
  Country: US (occurrence: US)
  Receive Date: 20151104
  Receipt Date: 20151104
  Transmission Date: 20160304
  Serious: Yes (Other)
  Sender: FDA-Public Use
  Company Number: US-AMGEN-USASP2015115313

PATIENT
  Age: 20 Year
  Sex: Male

DRUGS (6)
  1. ENBREL [Suspect]
     Active Substance: ETANERCEPT
     Indication: PRODUCT USED FOR UNKNOWN INDICATION
     Dosage: UNK
     Route: 065
  2. EFALIZUMAB [Concomitant]
     Active Substance: EFALIZUMAB
  3. METHOTREXATE [Concomitant]
     Active Substance: METHOTREXATE
  4. ACITRETIN. [Concomitant]
     Active Substance: ACITRETIN
  5. CYCLOSPORINE. [Concomitant]
     Active Substance: CYCLOSPORINE
     Dosage: UNK
  6. INFLIXIMAB [Concomitant]
     Active Substance: INFLIXIMAB
     Dosage: UNK

REACTIONS (1)
  - Ewing^s sarcoma [Unknown]
